FAERS Safety Report 10329123 (Version 1)
Quarter: 2014Q3

REPORT INFORMATION
  Report Type: Spontaneous
  Country: US (occurrence: US)
  Receive Date: 20140721
  Receipt Date: 20140721
  Transmission Date: 20150326
  Serious: Yes (Death, Hospitalization, Other)
  Sender: FDA-Public Use
  Company Number: US-GILEAD-2014-0109207

PATIENT
  Age: 78 Year
  Sex: Male

DRUGS (4)
  1. LETAIRIS [Suspect]
     Active Substance: AMBRISENTAN
     Indication: PULMONARY ARTERIAL HYPERTENSION
     Dosage: 10 MG, UNK
     Route: 065
     Dates: start: 20100215
  2. XARELTO [Concomitant]
     Active Substance: RIVAROXABAN
  3. LETAIRIS [Suspect]
     Active Substance: AMBRISENTAN
     Dates: start: 20100216
  4. LETAIRIS [Suspect]
     Active Substance: AMBRISENTAN
     Dates: end: 20100216

REACTIONS (1)
  - Death [Fatal]

NARRATIVE: CASE EVENT DATE: 20140624
